FAERS Safety Report 25438298 (Version 1)
Quarter: 2025Q2

REPORT INFORMATION
  Report Type: Spontaneous
  Country: FR (occurrence: FR)
  Receive Date: 20250616
  Receipt Date: 20250616
  Transmission Date: 20250717
  Serious: Yes (Hospitalization, Other)
  Sender: SANOFI AVENTIS
  Company Number: None

PATIENT
  Age: 31 Year
  Sex: Male
  Weight: 60.7 kg

DRUGS (8)
  1. ISONIAZID [Suspect]
     Active Substance: ISONIAZID
     Indication: Pulmonary tuberculosis
     Dosage: 250 MG, QD
     Route: 048
     Dates: start: 20250419, end: 20250514
  2. ISONIAZID [Suspect]
     Active Substance: ISONIAZID
     Dosage: 200 MG, QD
     Route: 048
     Dates: start: 20250520
  3. RIFAMPIN [Suspect]
     Active Substance: RIFAMPIN
     Indication: Pulmonary tuberculosis
     Dosage: 600 MG, QD
     Route: 048
     Dates: start: 20250419, end: 20250514
  4. RIFAMPIN [Suspect]
     Active Substance: RIFAMPIN
     Dosage: 600 MG, QD
     Route: 048
     Dates: start: 20250520
  5. PYRAZINAMIDE [Suspect]
     Active Substance: PYRAZINAMIDE
     Indication: Pulmonary tuberculosis
     Dosage: 1500.000MG QD
     Route: 048
     Dates: start: 20250419, end: 20250514
  6. PYRAZINAMIDE [Suspect]
     Active Substance: PYRAZINAMIDE
     Dosage: 1500 MG, QD
     Route: 048
     Dates: start: 20250520
  7. ETHAMBUTOL [Suspect]
     Active Substance: ETHAMBUTOL HYDROCHLORIDE
     Indication: Pulmonary tuberculosis
     Dosage: 1000 MG, QD
     Route: 048
     Dates: start: 20250419, end: 20250514
  8. ETHAMBUTOL [Suspect]
     Active Substance: ETHAMBUTOL HYDROCHLORIDE
     Dosage: 1000 MG, QD
     Route: 048
     Dates: start: 20250520

REACTIONS (1)
  - Hepatocellular injury [Recovering/Resolving]

NARRATIVE: CASE EVENT DATE: 20250502
